FAERS Safety Report 16740917 (Version 2)
Quarter: 2019Q3

REPORT INFORMATION
  Report Type: Spontaneous
  Country: IT (occurrence: IT)
  Receive Date: 20190826
  Receipt Date: 20190917
  Transmission Date: 20191005
  Serious: Yes (Death, Life-Threatening, Other)
  Sender: FDA-Public Use
  Company Number: IT-PFIZER INC-2019364440

PATIENT
  Age: 35 Year
  Sex: Male

DRUGS (7)
  1. DEXAMETHASONE SODIUM PHOSPHATE. [Suspect]
     Active Substance: DEXAMETHASONE SODIUM PHOSPHATE
     Dosage: 10 MG, 2X/DAY
     Route: 042
  2. FUROSEMIDE. [Suspect]
     Active Substance: FUROSEMIDE
     Dosage: 20 MG, UNK
     Route: 042
  3. FUROSEMIDE. [Suspect]
     Active Substance: FUROSEMIDE
     Dosage: 200 MG, UNK (BEFORE 100 MG IV BOLUS AND THEN ANOTHER 100 MG IN CONTINUOUS INFUSION)
     Route: 040
  4. TRETINOINA [Suspect]
     Active Substance: TRETINOIN
     Indication: ACUTE PROMYELOCYTIC LEUKAEMIA
     Dosage: 10 MG, UNK
  5. PREDNISONE. [Suspect]
     Active Substance: PREDNISONE
     Indication: ACUTE PROMYELOCYTIC LEUKAEMIA
     Dosage: 25 MG, UNK
  6. AMLODIPINE BESILATE [Suspect]
     Active Substance: AMLODIPINE BESYLATE
     Dosage: 10 MG, UNK
     Route: 048
  7. HYDROXYCARBAMIDE [Suspect]
     Active Substance: HYDROXYUREA
     Indication: ACUTE PROMYELOCYTIC LEUKAEMIA
     Dosage: 500 MG, UNK

REACTIONS (5)
  - Hypertension [Unknown]
  - Differentiation syndrome [Not Recovered/Not Resolved]
  - Generalised tonic-clonic seizure [Unknown]
  - Cardiac arrest [Fatal]
  - Cerebral haemorrhage [Fatal]
